FAERS Safety Report 8972263 (Version 1)
Quarter: 2012Q4

REPORT INFORMATION
  Report Type: 
  Country: US (occurrence: US)
  Receive Date: 20121218
  Receipt Date: 20121218
  Transmission Date: 20130627
  Serious: Yes (Other)
  Sender: FDA-Public Use
  Company Number: US-ELI_LILLY_AND_COMPANY-US201212004186

PATIENT
  Sex: Female

DRUGS (2)
  1. HUMALOG LISPRO [Suspect]
     Dosage: UNK UNK, unknown
     Route: 058
  2. LANTUS [Concomitant]

REACTIONS (2)
  - Unevaluable event [Unknown]
  - Incorrect dose administered [Recovered/Resolved]
